FAERS Safety Report 4748903-2 (Version None)
Quarter: 2005Q3

REPORT INFORMATION
  Report Type: 
  Country: None (occurrence: None)
  Receive Date: 20050819
  Receipt Date: 20050802
  Transmission Date: 20060218
  Serious: Yes (Other)
  Sender: FDA-Public Use
  Company Number: 2005PK01454

PATIENT
  Age: 27377 Day
  Sex: Female

DRUGS (1)
  1. NOLVADEX [Suspect]
     Indication: BREAST CANCER
     Route: 048
     Dates: start: 19970701

REACTIONS (1)
  - CEREBROVASCULAR ACCIDENT [None]
